APPROVED DRUG PRODUCT: SODIUM FLUORIDE F-18
Active Ingredient: SODIUM FLUORIDE F-18
Strength: 10-200mCi/ML
Dosage Form/Route: INJECTABLE;INTRAVENOUS
Application: A216126 | Product #001 | TE Code: AP
Applicant: BAMF HEALTH INC
Approved: Dec 6, 2022 | RLD: No | RS: No | Type: RX